FAERS Safety Report 18495646 (Version 1)
Quarter: 2020Q4

REPORT INFORMATION
  Report Type: Report from Study
  Country: GT (occurrence: GT)
  Receive Date: 20201112
  Receipt Date: 20201112
  Transmission Date: 20210114
  Serious: Yes (Other)
  Sender: FDA-Public Use
  Company Number: NVSC2020GT299323

PATIENT
  Age: 37 Year
  Sex: Male

DRUGS (2)
  1. EXFORGE [Suspect]
     Active Substance: AMLODIPINE BESYLATE\VALSARTAN
     Indication: HYPERTENSION
     Dosage: 1 DF (5/320 MG) (STARTED 2 YEARS AGO AND STOPPED ONE YEAR AGO APPROXIMATELY)
     Route: 065
  2. EXFORGE [Suspect]
     Active Substance: AMLODIPINE BESYLATE\VALSARTAN
     Dosage: 1 DF (5/320 MG) (LIKE 1 MONTH AGO)
     Route: 065

REACTIONS (3)
  - Chronic kidney disease [Unknown]
  - Blood pressure decreased [Unknown]
  - Hypertension [Unknown]
